FAERS Safety Report 12717495 (Version 1)
Quarter: 2016Q3

REPORT INFORMATION
  Report Type: Report from Study
  Country: US (occurrence: US)
  Receive Date: 20160906
  Receipt Date: 20160906
  Transmission Date: 20161109
  Serious: Yes (Other)
  Sender: FDA-Public Use
  Company Number: US-MALLINCKRODT-T201603983

PATIENT
  Sex: Male

DRUGS (1)
  1. REPOSITORY CORTICOTROPIN INJECTION [Suspect]
     Active Substance: CORTICOTROPIN
     Indication: SARCOIDOSIS
     Dosage: 65 UNITS EVERY 3 DAYS
     Route: 065
     Dates: start: 201405

REACTIONS (2)
  - Osteomyelitis [Unknown]
  - Cardiac disorder [Unknown]
